FAERS Safety Report 9964456 (Version 2)
Quarter: 2014Q1

REPORT INFORMATION
  Report Type: Report from Study
  Country: CA (occurrence: CA)
  Receive Date: 20140305
  Receipt Date: 20140305
  Transmission Date: 20141002
  Serious: Yes (Other)
  Sender: FDA-Public Use
  Company Number: CA-BRISTOL-MYERS SQUIBB COMPANY-20097028

PATIENT
  Age: 52 Year
  Sex: Female

DRUGS (8)
  1. ORENCIA [Suspect]
     Indication: RHEUMATOID ARTHRITIS
     Dates: start: 20080715
  2. METHOTREXATE [Concomitant]
  3. PREDNISONE [Concomitant]
  4. PLAQUENIL [Concomitant]
  5. VITAMIN D [Concomitant]
  6. FOLIC ACID [Concomitant]
  7. IRON [Concomitant]
  8. MARVELON [Concomitant]

REACTIONS (3)
  - Labyrinthitis [Unknown]
  - Cough [Recovered/Resolved]
  - Dyspnoea [Recovered/Resolved]
